FAERS Safety Report 9565471 (Version 1)
Quarter: 2013Q3

REPORT INFORMATION
  Report Type: Spontaneous
  Country: JP (occurrence: JP)
  Receive Date: 20130930
  Receipt Date: 20130930
  Transmission Date: 20140515
  Serious: Yes (Hospitalization)
  Sender: FDA-Public Use
  Company Number: JP-TEVA-433936ISR

PATIENT
  Age: 84 Year
  Sex: Female
  Weight: 43.6 kg

DRUGS (10)
  1. PREDNISOLONE [Suspect]
     Dosage: 20MG
  2. PREDNISOLONE [Suspect]
     Dosage: REDUCED FROM 20MG TO 5MG EVERY 2ND DAY
  3. PREDNISOLONE [Suspect]
     Dosage: 40 MILLIGRAM DAILY; INCREASED FROM 5MG EVERY 2ND DAY TO 40 MG/DAY
  4. PREDNISOLONE [Suspect]
     Dosage: 10 MILLIGRAM DAILY; REDUCED FROM 40 MG/DAY TO 10 MG/DAY
  5. RIFAMPICIN [Suspect]
     Indication: DISSEMINATED TUBERCULOSIS
     Dosage: 300MG
     Dates: start: 201202
  6. RIFAMPICIN [Suspect]
     Dosage: 25MG (STOPPED TAKEN 300MG, THEN READMINISTERED 25MG AS DESENSITISATION THERAPY)
  7. ISONIAZID [Concomitant]
     Indication: DISSEMINATED TUBERCULOSIS
     Dosage: 200MG
     Dates: start: 201202
  8. ETHAMBUTOL [Concomitant]
     Indication: DISSEMINATED TUBERCULOSIS
     Dosage: 500MG
     Dates: start: 201202
  9. FAMOTIDINE [Concomitant]
  10. CEFMETAZOLE [Concomitant]
     Indication: URINARY TRACT INFECTION

REACTIONS (1)
  - Pneumonitis [Recovered/Resolved]
